FAERS Safety Report 19755683 (Version 1)
Quarter: 2021Q3

REPORT INFORMATION
  Report Type: Report from Study
  Country: US (occurrence: US)
  Receive Date: 20210827
  Receipt Date: 20210827
  Transmission Date: 20211014
  Serious: Yes (Other)
  Sender: FDA-Public Use
  Company Number: US-SA-2021SA256992

PATIENT
  Age: 62 Year
  Sex: Female

DRUGS (2)
  1. DUPILUMAB [Suspect]
     Active Substance: DUPILUMAB
     Dosage: 300 MG, QOW
     Route: 058
     Dates: start: 2021
  2. DUPILUMAB [Suspect]
     Active Substance: DUPILUMAB
     Indication: DERMATITIS ATOPIC
     Dosage: 600 MG, 1X
     Route: 058
     Dates: start: 20210622, end: 20210622

REACTIONS (7)
  - Renal impairment [Unknown]
  - Myalgia [Unknown]
  - Burning sensation [Unknown]
  - Arthralgia [Unknown]
  - Visual impairment [Unknown]
  - Sensitive skin [Unknown]
  - Injection site pain [Unknown]

NARRATIVE: CASE EVENT DATE: 2021
